FAERS Safety Report 7594977-3 (Version None)
Quarter: 2011Q2

REPORT INFORMATION
  Report Type: 
  Country: None (occurrence: None)
  Receive Date: 20110620
  Receipt Date: 20110407
  Transmission Date: 20111010
  Serious: Yes (Hospitalization)
  Sender: FDA-Public Use
  Company Number: UTC-006207

PATIENT
  Age: 75 Year
  Sex: Female

DRUGS (2)
  1. TRACLEER [Concomitant]
  2. TYVASO [Suspect]
     Dosage: 216 MCG (54 MCG, 4 IN 1 D), INHALATION
     Route: 055
     Dates: start: 20100401

REACTIONS (1)
  - FALL [None]
